FAERS Safety Report 9126426 (Version 1)
Quarter: 2013Q1

REPORT INFORMATION
  Report Type: Spontaneous
  Country: IE (occurrence: IE)
  Receive Date: 20130117
  Receipt Date: 20130117
  Transmission Date: 20140127
  Serious: Yes (Other)
  Sender: FDA-Public Use
  Company Number: IE-GLAXOSMITHKLINE-B0860419A

PATIENT
  Age: 68 Year
  Sex: Female
  Weight: 86.2 kg

DRUGS (5)
  1. ZINACEF [Suspect]
     Indication: ANTIBIOTIC PROPHYLAXIS
     Route: 042
     Dates: start: 20121102, end: 20121102
  2. SCOPODERM TTS [Concomitant]
     Indication: PROCEDURAL VOMITING
     Route: 065
  3. ELTROXIN [Concomitant]
     Indication: HYPOTHYROIDISM
     Dosage: 100MCG PER DAY
     Route: 065
  4. DALMANE [Concomitant]
     Indication: INSOMNIA
     Dosage: 15MG AT NIGHT
     Route: 065
  5. LACRILUBE [Concomitant]
     Indication: DRY EYE
     Dosage: 1APP AT NIGHT
     Route: 047

REACTIONS (6)
  - Electrocardiogram ST segment elevation [Recovered/Resolved]
  - Circulatory collapse [Recovered/Resolved]
  - Dysgeusia [Recovered/Resolved]
  - Hypotension [Recovered/Resolved]
  - Bradycardia [Recovered/Resolved]
  - Erythema [Recovered/Resolved]
